FAERS Safety Report 15923284 (Version 2)
Quarter: 2019Q1

REPORT INFORMATION
  Report Type: Spontaneous
  Country: US (occurrence: US)
  Receive Date: 20190205
  Receipt Date: 20190219
  Transmission Date: 20190417
  Serious: No
  Sender: FDA-Public Use
  Company Number: US-ALLERGAN-1825696US

PATIENT
  Age: 60 Year
  Sex: Female

DRUGS (3)
  1. BOTOX [Suspect]
     Active Substance: ONABOTULINUMTOXINA
     Indication: SKIN WRINKLING
     Dosage: 20 UNITS, SINGLE
     Route: 030
     Dates: start: 20180501, end: 20180501
  2. BOTOX [Suspect]
     Active Substance: ONABOTULINUMTOXINA
     Indication: SKIN WRINKLING
     Dosage: 10 UNITS, SINGLE
     Route: 030
     Dates: start: 20180501, end: 20180501
  3. BOTOX [Suspect]
     Active Substance: ONABOTULINUMTOXINA
     Indication: SKIN WRINKLING
     Dosage: 5 UNITS, SINGLE
     Route: 030
     Dates: start: 20180501, end: 20180501

REACTIONS (7)
  - Brow ptosis [Recovering/Resolving]
  - Feeling abnormal [Recovering/Resolving]
  - Panic attack [Recovering/Resolving]
  - Eyelid ptosis [Recovering/Resolving]
  - Anxiety [Recovering/Resolving]
  - Dysarthria [Recovering/Resolving]
  - Facial asymmetry [Recovering/Resolving]

NARRATIVE: CASE EVENT DATE: 20180504
